FAERS Safety Report 24372510 (Version 8)
Quarter: 2024Q4

REPORT INFORMATION
  Report Type: Report from Study
  Country: FR (occurrence: FR)
  Receive Date: 20240927
  Receipt Date: 20241230
  Transmission Date: 20250114
  Serious: Yes (Death, Hospitalization, Other)
  Sender: PFIZER
  Company Number: FR-ASTELLAS-2024-AER-002416

PATIENT
  Age: 69 Year
  Sex: Male
  Weight: 65 kg

DRUGS (21)
  1. PADCEV [Suspect]
     Active Substance: ENFORTUMAB VEDOTIN\ENFORTUMAB VEDOTIN-EJFV
     Indication: Bladder cancer
     Dosage: C1, D1; NO INJECTION ON DAY 8 AND 15; NEW CYCLE AT DAY 29
     Route: 042
     Dates: start: 20240527
  2. PADCEV [Suspect]
     Active Substance: ENFORTUMAB VEDOTIN\ENFORTUMAB VEDOTIN-EJFV
     Dosage: C1, D1; NO INJECTION ON DAY 8 AND 15; NEW CYCLE AT DAY 29 (1.25 MG/KG, CYCLIC)
     Route: 042
  3. PADCEV [Suspect]
     Active Substance: ENFORTUMAB VEDOTIN\ENFORTUMAB VEDOTIN-EJFV
     Dosage: C2, D1(1.25 MG/KG, CYCLIC)
     Route: 042
     Dates: start: 20240624
  4. PADCEV [Suspect]
     Active Substance: ENFORTUMAB VEDOTIN\ENFORTUMAB VEDOTIN-EJFV
     Dosage: C2, D8 (1.25 MG, CYCLIC)
     Route: 042
     Dates: start: 20240701
  5. PADCEV [Suspect]
     Active Substance: ENFORTUMAB VEDOTIN\ENFORTUMAB VEDOTIN-EJFV
     Dosage: C2, D8 (1.25 MG, CYCLIC)
     Route: 042
  6. PADCEV [Suspect]
     Active Substance: ENFORTUMAB VEDOTIN\ENFORTUMAB VEDOTIN-EJFV
     Dosage: C2, D15 (1.25 MG, CYCLIC)
     Route: 042
     Dates: start: 20240708
  7. PADCEV [Suspect]
     Active Substance: ENFORTUMAB VEDOTIN\ENFORTUMAB VEDOTIN-EJFV
     Dosage: C2, D15 (1.25 MG, CYCLIC)
     Route: 042
     Dates: end: 20240708
  8. PIPERACILLIN SODIUM\TAZOBACTAM SODIUM [Suspect]
     Active Substance: PIPERACILLIN SODIUM\TAZOBACTAM SODIUM
     Indication: Urinary tract infection
     Dosage: UNK
     Route: 042
     Dates: start: 20240416, end: 20240713
  9. PIPERACILLIN SODIUM\TAZOBACTAM SODIUM [Suspect]
     Active Substance: PIPERACILLIN SODIUM\TAZOBACTAM SODIUM
     Indication: Pyelonephritis
  10. NEBIVOLOL [Concomitant]
     Active Substance: NEBIVOLOL
     Dosage: 5 MG, 1X/DAY (THE MORNING)
     Route: 065
  11. ATORVASTATIN [Concomitant]
     Active Substance: ATORVASTATIN
     Dosage: 80 MG, 1X/DAY (THE EVENING)
     Route: 065
  12. FOLIC ACID [Concomitant]
     Active Substance: FOLIC ACID
     Dosage: 5 MG, 2X/DAY (THE MORNING AND THE MIDDAY)
     Route: 065
  13. INNOHEP [Concomitant]
     Active Substance: TINZAPARIN SODIUM
     Indication: Phlebitis
     Dosage: 13000 IU
     Route: 065
  14. SKENAN [Concomitant]
     Active Substance: MORPHINE SULFATE
     Dosage: 30 MG, 2X/DAY (THE MORNING AND THE EVENING)
     Route: 065
  15. MAGNESIUM CARBONATE [Concomitant]
     Active Substance: MAGNESIUM CARBONATE
     Dosage: 1 DF, 1X/DAY (THE MIDDAY)
     Route: 065
  16. ERYTHROPOIETIN [Concomitant]
     Active Substance: ERYTHROPOIETIN
     Dosage: 30000 IU/0.75 MG 1 TIME WEEKLY
     Route: 065
  17. MORPHINE SULFATE [Concomitant]
     Active Substance: MORPHINE SULFATE
     Dosage: UNK
     Route: 065
  18. DOLIPRANE [Concomitant]
     Active Substance: ACETAMINOPHEN
     Dosage: UNK, AS NEEDED
     Route: 065
  19. METOCLOPRAMIDE [Concomitant]
     Active Substance: METOCLOPRAMIDE
     Dosage: UNK, AS NEEDED
     Route: 065
  20. SMECTA [Concomitant]
     Active Substance: MONTMORILLONITE
     Dosage: UNK, AS NEEDED
     Route: 065
  21. CETIRIZINE [Concomitant]
     Active Substance: CETIRIZINE HYDROCHLORIDE
     Dosage: UNK
     Route: 065

REACTIONS (3)
  - Toxic epidermal necrolysis [Fatal]
  - Urinary tract infection pseudomonal [Unknown]
  - Pyelonephritis [Unknown]

NARRATIVE: CASE EVENT DATE: 20240601
